FAERS Safety Report 24429328 (Version 1)
Quarter: 2024Q4

REPORT INFORMATION
  Report Type: Spontaneous
  Country: US (occurrence: US)
  Receive Date: 20241011
  Receipt Date: 20241011
  Transmission Date: 20250115
  Serious: No
  Sender: ABBVIE
  Company Number: US-ABBVIE-5952698

PATIENT
  Sex: Female

DRUGS (1)
  1. LATISSE [Suspect]
     Active Substance: BIMATOPROST
     Indication: Eyelash thickening
     Dosage: FORM STRENGTH: 0.3 MG/ML
     Route: 061

REACTIONS (2)
  - Eye pruritus [Unknown]
  - Eye allergy [Unknown]
